FAERS Safety Report 4385775-2 (Version None)
Quarter: 2004Q2

REPORT INFORMATION
  Report Type: 
  Country: None (occurrence: None)
  Receive Date: 20040623
  Receipt Date: 20040610
  Transmission Date: 20050107
  Serious: Yes (Other)
  Sender: FDA-Public Use
  Company Number: HQWYE121327MAY04

PATIENT

DRUGS (1)
  1. TAZOCILLINE (PIPERACILLIN/TAZOBACTAM, INJECTION) [Suspect]
     Indication: BRONCHOPNEUMONIA
     Dosage: 2.25 G QID, INTRAVENOUS
     Route: 042

REACTIONS (3)
  - CONVULSION [None]
  - DRUG TOXICITY [None]
  - PRESCRIBED OVERDOSE [None]
